FAERS Safety Report 6924166-4 (Version None)
Quarter: 2010Q3

REPORT INFORMATION
  Report Type: 
  Country: None (occurrence: None)
  Receive Date: 20100812
  Receipt Date: 20100812
  Transmission Date: 20110219
  Serious: Yes (Death, Hospitalization)
  Sender: FDA-Public Use
  Company Number: None

PATIENT
  Age: 61 Year
  Sex: Female
  Weight: 82.3 kg

DRUGS (1)
  1. PHENYTOIN [Suspect]

REACTIONS (9)
  - BLISTER [None]
  - DIALYSIS [None]
  - ERYTHEMA MULTIFORME [None]
  - HEPATIC FAILURE [None]
  - RASH GENERALISED [None]
  - RENAL FAILURE ACUTE [None]
  - RESPIRATORY FAILURE [None]
  - SKIN EXFOLIATION [None]
  - TOXIC EPIDERMAL NECROLYSIS [None]
